FAERS Safety Report 11778922 (Version 2)
Quarter: 2016Q1

REPORT INFORMATION
  Report Type: Spontaneous
  Country: US (occurrence: US)
  Receive Date: 20151125
  Receipt Date: 20160119
  Transmission Date: 20160525
  Serious: Yes (Death)
  Sender: FDA-Public Use
  Company Number: US-TEVA-612118USA

PATIENT
  Sex: Male

DRUGS (2)
  1. FENTORA [Suspect]
     Active Substance: FENTANYL CITRATE
     Indication: URETERIC CANCER
     Dosage: DOSE NOT PROVIDED
     Route: 002
  2. FENTORA [Suspect]
     Active Substance: FENTANYL CITRATE
     Indication: RENAL CANCER

REACTIONS (1)
  - Death [Fatal]
